FAERS Safety Report 10522043 (Version 2)
Quarter: 2014Q4

REPORT INFORMATION
  Report Type: Spontaneous
  Country: NL (occurrence: None)
  Receive Date: 20141014
  Receipt Date: 20141027
  Transmission Date: 20150528
  Serious: Yes (Death)
  Sender: FDA-Public Use
  Company Number: 2014NL008628

PATIENT
  Age: 84 Year
  Sex: Male

DRUGS (1)
  1. ELIGARD [Suspect]
     Active Substance: LEUPROLIDE ACETATE
     Indication: PROSTATE CANCER
     Dosage: 1 PER 6 MONTHS, PARENTERAL
     Route: 051
     Dates: start: 201403, end: 20140409

REACTIONS (5)
  - Metastases to lung [None]
  - Death [None]
  - Pneumonia [None]
  - Pancytopenia [None]
  - Metastases to bone [None]

NARRATIVE: CASE EVENT DATE: 20140827
